FAERS Safety Report 19880708 (Version 5)
Quarter: 2021Q4

REPORT INFORMATION
  Report Type: Report from Study
  Country: US (occurrence: US)
  Receive Date: 20210924
  Receipt Date: 20211217
  Transmission Date: 20220303
  Serious: Yes (Other)
  Sender: FDA-Public Use
  Company Number: US-TAKEDA-US202023466

PATIENT
  Sex: Female
  Weight: 100 kg

DRUGS (23)
  1. HUMAN IMMUNOGLOBULIN G [Suspect]
     Active Substance: HUMAN IMMUNOGLOBULIN G
     Indication: Primary immunodeficiency syndrome
     Dosage: 32 GRAM, Q2WEEKS
     Route: 058
     Dates: start: 20171113
  2. HUMAN IMMUNOGLOBULIN G [Suspect]
     Active Substance: HUMAN IMMUNOGLOBULIN G
     Indication: Torticollis
  3. LYRICA [Concomitant]
     Active Substance: PREGABALIN
     Route: 065
  4. BUSPIRONE [Concomitant]
     Active Substance: BUSPIRONE HYDROCHLORIDE
     Route: 065
  5. FLONASE [Concomitant]
     Active Substance: FLUTICASONE PROPIONATE
     Route: 065
  6. DOXYCYCLINE [Concomitant]
     Active Substance: DOXYCYCLINE
     Route: 065
  7. VENTOLIN [Concomitant]
     Active Substance: ALBUTEROL SULFATE
     Route: 065
  8. PENLAC [Concomitant]
     Active Substance: CICLOPIROX
     Route: 065
  9. ALPRAZOLAM [Concomitant]
     Active Substance: ALPRAZOLAM
     Route: 065
  10. FENTANYL [Concomitant]
     Active Substance: FENTANYL
     Route: 065
  11. ZYRTEC [Concomitant]
     Active Substance: CETIRIZINE HYDROCHLORIDE
     Route: 065
  12. AZITHROMYCIN [Concomitant]
     Active Substance: AZITHROMYCIN
     Route: 065
  13. CALCIUM\VITAMIN D [Concomitant]
     Active Substance: CALCIUM\VITAMIN D
     Route: 065
  14. MONTELUKAST [Concomitant]
     Active Substance: MONTELUKAST SODIUM
     Route: 065
  15. DILAUDID [Concomitant]
     Active Substance: HYDROMORPHONE HYDROCHLORIDE
     Route: 065
  16. VITAMIN B12 [Concomitant]
     Active Substance: CYANOCOBALAMIN
     Route: 065
  17. LIDOCAINE [Concomitant]
     Active Substance: LIDOCAINE
     Route: 065
  18. ACETAMINOPHEN [Concomitant]
     Active Substance: ACETAMINOPHEN
     Route: 065
  19. DIPHENHYDRAMINE [Concomitant]
     Active Substance: DIPHENHYDRAMINE
     Route: 065
  20. EPINEPHRINE [Concomitant]
     Active Substance: EPINEPHRINE
     Route: 065
  21. TRINTELLIX [Concomitant]
     Active Substance: VORTIOXETINE HYDROBROMIDE
     Route: 065
  22. Hyclate [Concomitant]
     Route: 065
  23. ALBUTEROL SULFATE [Concomitant]
     Active Substance: ALBUTEROL SULFATE
     Route: 065

REACTIONS (16)
  - Respiratory tract infection [Unknown]
  - Sinusitis [Unknown]
  - Migraine [Unknown]
  - Pharyngitis [Unknown]
  - Ear infection [Unknown]
  - Pyrexia [Unknown]
  - Influenza [Unknown]
  - Depression [Unknown]
  - Anxiety [Unknown]
  - Insomnia [Unknown]
  - Neck pain [Unknown]
  - Asthma [Unknown]
  - Immune system disorder [Unknown]
  - Arthritis [Unknown]
  - Product dose omission issue [Unknown]
  - Therapy interrupted [Unknown]
